FAERS Safety Report 4819947-7 (Version None)
Quarter: 2005Q4

REPORT INFORMATION
  Report Type: 
  Country: None (occurrence: None)
  Receive Date: 20051102
  Receipt Date: 20051018
  Transmission Date: 20060501
  Serious: Yes (Hospitalization)
  Sender: FDA-Public Use
  Company Number: S05-FRA-03799-01

PATIENT
  Age: 19 Year
  Sex: Female

DRUGS (7)
  1. SEROPLEX (ESCITALOPRAM) [Suspect]
     Dosage: 10 MG QD PO
     Route: 048
     Dates: start: 20050901, end: 20050903
  2. LEPTICUR (TROPATEPINE HYDROCHLORIDE) [Concomitant]
  3. SULFAMETHOXAZOLE [Concomitant]
  4. NORVIR [Concomitant]
  5. EPIVIR [Concomitant]
  6. VIREAD [Concomitant]
  7. FOSAMPRENAVIR [Concomitant]

REACTIONS (5)
  - DYSARTHRIA [None]
  - DYSKINESIA [None]
  - HEADACHE [None]
  - INFLAMMATION [None]
  - NYSTAGMUS [None]
